FAERS Safety Report 17899337 (Version 1)
Quarter: 2020Q2

REPORT INFORMATION
  Report Type: Report from Study
  Country: None (occurrence: US)
  Receive Date: 20200615
  Receipt Date: 20200615
  Transmission Date: 20200714
  Serious: Yes (Other)
  Sender: FDA-Public Use
  Company Number: US-ABBVIE-19K-163-2698870-00

PATIENT
  Age: 70 Year
  Sex: Female

DRUGS (1)
  1. HUMIRA [Suspect]
     Active Substance: ADALIMUMAB
     Indication: CROHN^S DISEASE
     Route: 058

REACTIONS (8)
  - Stress [Unknown]
  - Diarrhoea [Unknown]
  - Procedural pneumothorax [Unknown]
  - Osteoarthritis [Unknown]
  - Diabetes mellitus [Unknown]
  - Muscle spasms [Unknown]
  - Arthropathy [Unknown]
  - Endometrial cancer stage I [Unknown]

NARRATIVE: CASE EVENT DATE: 201903
